FAERS Safety Report 8738536 (Version 2)
Quarter: 2012Q4

REPORT INFORMATION
  Report Type: Report from Study
  Country: CA (occurrence: CA)
  Receive Date: 20120823
  Receipt Date: 20120828
  Transmission Date: 20130627
  Serious: Yes (Other)
  Sender: FDA-Public Use
  Company Number: CA-JNJFOC-20120806791

PATIENT
  Age: 57 Year
  Sex: Male
  Weight: 76 kg

DRUGS (2)
  1. REMICADE [Suspect]
     Indication: PSORIASIS
     Route: 042
     Dates: start: 201105
  2. REMICADE [Suspect]
     Indication: PSORIASIS
     Route: 042
     Dates: start: 20120814

REACTIONS (3)
  - Hypertension [Not Recovered/Not Resolved]
  - Infusion related reaction [Not Recovered/Not Resolved]
  - Heart rate increased [Unknown]
